FAERS Safety Report 7247673-6 (Version None)
Quarter: 2011Q1

REPORT INFORMATION
  Report Type: 
  Country: None (occurrence: None)
  Receive Date: 20110127
  Receipt Date: 20110121
  Transmission Date: 20110831
  Serious: Yes (Hospitalization)
  Sender: FDA-Public Use
  Company Number: US-PFIZER INC-2011015719

PATIENT
  Sex: Female
  Weight: 58.9 kg

DRUGS (4)
  1. ADVIL PM [Suspect]
     Indication: PAIN
     Dosage: 800 MG, 2X/DAY
     Route: 048
  2. SYNTHROID [Concomitant]
     Indication: HYPOTHYROIDISM
     Dosage: 200 UG, UNK
     Route: 048
  3. DILTIAZEM [Concomitant]
     Indication: HYPERTENSION
     Dosage: 300 MG, 1X/DAY
     Route: 048
  4. ADVIL PM [Suspect]
     Indication: INSOMNIA
     Dosage: 800 MG, 1X/DAY
     Route: 048

REACTIONS (3)
  - OVERDOSE [None]
  - DRUG INEFFECTIVE [None]
  - ANKLE FRACTURE [None]
